FAERS Safety Report 4534443-2 (Version None)
Quarter: 2004Q4

REPORT INFORMATION
  Report Type: 
  Country: None (occurrence: None)
  Receive Date: 20041222
  Receipt Date: 20041115
  Transmission Date: 20050328
  Serious: Yes (Hospitalization)
  Sender: FDA-Public Use
  Company Number: 200414321FR

PATIENT
  Age: 58 Year
  Sex: Male

DRUGS (3)
  1. FLAGYL [Suspect]
     Route: 048
     Dates: start: 20040927
  2. PARACETAMOL [Suspect]
     Route: 048
  3. X-PREP [Concomitant]
     Route: 048
     Dates: start: 20040927, end: 20040927

REACTIONS (6)
  - C-REACTIVE PROTEIN INCREASED [None]
  - CARDIOVASCULAR DISORDER [None]
  - HEPATITIS ACUTE [None]
  - HEPATOMEGALY [None]
  - SPIDER NAEVUS [None]
  - SPLENOMEGALY [None]
